FAERS Safety Report 19051050 (Version 1)
Quarter: 2021Q1

REPORT INFORMATION
  Report Type: Spontaneous
  Country: US (occurrence: US)
  Receive Date: 20210324
  Receipt Date: 20210324
  Transmission Date: 20210420
  Serious: No
  Sender: FDA-Public Use
  Company Number: US-ALLERGAN-2013007US

PATIENT
  Sex: Male

DRUGS (1)
  1. MESALAZINE 1 GM SUP [Suspect]
     Active Substance: MESALAMINE
     Indication: PRODUCT USED FOR UNKNOWN INDICATION
     Dosage: UNK
     Route: 065

REACTIONS (3)
  - Product packaging quantity issue [Unknown]
  - Drug ineffective [Unknown]
  - Wrong technique in product usage process [Unknown]
